FAERS Safety Report 5853552-9 (Version None)
Quarter: 2008Q3

REPORT INFORMATION
  Report Type: 
  Country: None (occurrence: None)
  Receive Date: 20080822
  Receipt Date: 20080818
  Transmission Date: 20090109
  Serious: Yes (Death)
  Sender: FDA-Public Use
  Company Number: US-JNJFOC-20080804012

PATIENT
  Sex: Male

DRUGS (2)
  1. LEVAQUIN [Suspect]
     Indication: DRUG USE FOR UNKNOWN INDICATION
     Dosage: FOR 5 DAYS
     Route: 042
  2. CIPRO [Suspect]
     Indication: URINARY TRACT INFECTION
     Dosage: FOR 3 DAYS

REACTIONS (1)
  - DEATH [None]
